FAERS Safety Report 22324123 (Version 1)
Quarter: 2023Q2

REPORT INFORMATION
  Report Type: Spontaneous
  Country: US (occurrence: None)
  Receive Date: 20230512
  Receipt Date: 20230512
  Transmission Date: 20230721
  Serious: No
  Sender: FDA-Public Use
  Company Number: None

PATIENT
  Age: 71 Year
  Sex: Male

DRUGS (1)
  1. SKYRIZI [Suspect]
     Active Substance: RISANKIZUMAB-RZAA
     Indication: Psoriatic arthropathy
     Dosage: 150 MG/ML EVERY 3 MONTHS SUBCUTANEOUS?
     Route: 058
     Dates: start: 20211202

REACTIONS (2)
  - Skin ulcer [None]
  - Skin weeping [None]

NARRATIVE: CASE EVENT DATE: 20230511
